FAERS Safety Report 9943070 (Version 1)
Quarter: 2014Q1

REPORT INFORMATION
  Report Type: Report from Study
  Country: US (occurrence: US)
  Receive Date: 20140303
  Receipt Date: 20140303
  Transmission Date: 20141002
  Serious: No
  Sender: FDA-Public Use
  Company Number: US-ABBVIE-13P-163-1046292-00

PATIENT
  Age: 30 Year
  Sex: Female

DRUGS (10)
  1. HUMIRA [Suspect]
     Indication: RHEUMATOID ARTHRITIS
     Dates: start: 201208
  2. METHOTREXATE [Concomitant]
     Indication: PRODUCT USED FOR UNKNOWN INDICATION
     Dosage: 3 TABLETS WEEKLY
  3. LEVOTHYROXINE [Concomitant]
     Indication: HYPOTHYROIDISM
     Dosage: 100MCG DAILY
  4. LAMICTAL [Concomitant]
     Indication: BIPOLAR DISORDER
     Dosage: 225MG DAILY
  5. LAMICTAL [Concomitant]
     Indication: DEPRESSION
  6. SEROQUEL [Concomitant]
     Indication: BIPOLAR DISORDER
     Dosage: 150MG DAILY
  7. SEROQUEL [Concomitant]
     Indication: DEPRESSION
  8. WELLBUTRIN [Concomitant]
     Indication: BIPOLAR DISORDER
     Dosage: 300MG DAILY
  9. WELLBUTRIN [Concomitant]
     Indication: DEPRESSION
  10. IBUPROFEN [Concomitant]
     Indication: RHEUMATOID ARTHRITIS

REACTIONS (2)
  - Influenza [Not Recovered/Not Resolved]
  - Nasopharyngitis [Not Recovered/Not Resolved]
